FAERS Safety Report 24419050 (Version 2)
Quarter: 2024Q4

REPORT INFORMATION
  Report Type: Spontaneous
  Country: CN (occurrence: CN)
  Receive Date: 20241009
  Receipt Date: 20241018
  Transmission Date: 20250115
  Serious: No
  Sender: ROCHE
  Company Number: CN-BoehringerIngelheim-2023-BI-273356

PATIENT
  Age: 89 Year
  Sex: Female
  Weight: 50.0 kg

DRUGS (2)
  1. ALTEPLASE [Suspect]
     Active Substance: ALTEPLASE
     Indication: Thrombolysis
     Route: 042
     Dates: start: 20231018, end: 20231018
  2. ALTEPLASE [Suspect]
     Active Substance: ALTEPLASE
     Indication: Cerebral infarction

REACTIONS (2)
  - Ecchymosis [Unknown]
  - Off label use [Unknown]

NARRATIVE: CASE EVENT DATE: 20231018
